FAERS Safety Report 24843667 (Version 4)
Quarter: 2025Q1

REPORT INFORMATION
  Report Type: Spontaneous
  Country: TR (occurrence: TR)
  Receive Date: 20250115
  Receipt Date: 20250124
  Transmission Date: 20250409
  Serious: Yes (Other)
  Sender: SANDOZ
  Company Number: TR-002147023-NVSC2025TR004304

PATIENT

DRUGS (3)
  1. CATAFLAM [Suspect]
     Active Substance: DICLOFENAC POTASSIUM
     Indication: Migraine
     Route: 065
  2. RITALIN [Suspect]
     Active Substance: METHYLPHENIDATE HYDROCHLORIDE
     Indication: Product used for unknown indication
     Route: 065
  3. WELLBUTRIN [Concomitant]
     Active Substance: BUPROPION HYDROCHLORIDE
     Indication: Product used for unknown indication
     Route: 065

REACTIONS (16)
  - Drug withdrawal syndrome [Not Recovered/Not Resolved]
  - Drug dependence [Unknown]
  - Food craving [Unknown]
  - Disturbance in attention [Unknown]
  - Logorrhoea [Unknown]
  - Trichotillomania [Unknown]
  - Cerebral disorder [Unknown]
  - Mental disorder [Unknown]
  - Feeling abnormal [Unknown]
  - Sleep disorder [Unknown]
  - Tachycardia [Unknown]
  - Weight decreased [Unknown]
  - Tic [Unknown]
  - Decreased appetite [Unknown]
  - Drug ineffective [Unknown]
  - Product supply issue [Unknown]
